FAERS Safety Report 4277517-6 (Version None)
Quarter: 2004Q1

REPORT INFORMATION
  Report Type: 
  Country: None (occurrence: None)
  Receive Date: 20040122
  Receipt Date: 20040113
  Transmission Date: 20041129
  Serious: Yes (Disabling)
  Sender: FDA-Public Use
  Company Number: FR-BRISTOL-MYERS SQUIBB COMPANY-12477436

PATIENT
  Age: 53 Year
  Sex: Male
  Weight: 93 kg

DRUGS (4)
  1. KENACORT [Suspect]
     Route: 014
     Dates: start: 20030601
  2. SYNVISC [Suspect]
     Indication: LOCALISED OSTEOARTHRITIS
     Route: 014
     Dates: start: 20030301
  3. CORTICOSTEROID [Concomitant]
     Indication: LOCALISED OSTEOARTHRITIS
     Route: 014
     Dates: start: 20030301, end: 20030401
  4. NSAID [Concomitant]
     Indication: LOCALISED OSTEOARTHRITIS
     Route: 048
     Dates: start: 20030701

REACTIONS (2)
  - ARTHRALGIA [None]
  - JOINT EFFUSION [None]
